FAERS Safety Report 26147738 (Version 1)
Quarter: 2025Q4

REPORT INFORMATION
  Report Type: Spontaneous
  Country: JP (occurrence: JP)
  Receive Date: 20251211
  Receipt Date: 20251211
  Transmission Date: 20260117
  Serious: Yes (Hospitalization, Other)
  Sender: ASTELLAS
  Company Number: JP-ASTELLAS-2025-AER-068252

PATIENT
  Sex: Male

DRUGS (12)
  1. ENFORTUMAB VEDOTIN [Suspect]
     Active Substance: ENFORTUMAB VEDOTIN
     Indication: Bladder cancer
     Dosage: 1.25MG/KG, 100%
     Route: 065
  2. ENFORTUMAB VEDOTIN [Suspect]
     Active Substance: ENFORTUMAB VEDOTIN
     Dosage: 1.25MG/KG, 85%
     Route: 065
  3. PEMBROLIZUMAB [Suspect]
     Active Substance: PEMBROLIZUMAB
     Indication: Bladder cancer
     Route: 065
  4. HEPARINOID [Concomitant]
     Indication: Prophylaxis
     Route: 065
  5. CLOBETASOL [Concomitant]
     Active Substance: CLOBETASOL
     Indication: Rash
     Route: 065
  6. MYSER [Concomitant]
     Indication: Rash
     Route: 065
  7. MYSER [Concomitant]
     Indication: Pruritus
  8. VASELINE PURE [Concomitant]
     Active Substance: PETROLATUM
     Indication: Rash
     Route: 065
  9. VASELINE PURE [Concomitant]
     Active Substance: PETROLATUM
     Indication: Pruritus
  10. GLYCOSAMINOGLYCANS [Concomitant]
     Active Substance: GLYCOSAMINOGLYCANS
     Indication: Rash
     Route: 065
  11. GLYCOSAMINOGLYCANS [Concomitant]
     Active Substance: GLYCOSAMINOGLYCANS
     Indication: Pruritus
  12. AZUNOL [Concomitant]
     Indication: Stomatitis
     Route: 065

REACTIONS (7)
  - Immune-mediated enterocolitis [Unknown]
  - Feeding disorder [Unknown]
  - General physical health deterioration [Unknown]
  - Pruritus [Recovering/Resolving]
  - Rash [Recovered/Resolved]
  - Stomatitis [Recovering/Resolving]
  - Taste disorder [Unknown]
